FAERS Safety Report 13130123 (Version 1)
Quarter: 2017Q1

REPORT INFORMATION
  Report Type: Report from Study
  Country: CA (occurrence: CA)
  Receive Date: 20170119
  Receipt Date: 20170119
  Transmission Date: 20170428
  Serious: Yes (Hospitalization)
  Sender: FDA-Public Use
  Company Number: CA-TAKEDA-2017TUS001049

PATIENT
  Age: 50 Year
  Sex: Male

DRUGS (11)
  1. AZATHIOPRINE. [Concomitant]
     Active Substance: AZATHIOPRINE
     Dosage: UNK
  2. SIV RAMIPRIL [Concomitant]
     Dosage: UNK
  3. VEDOLIZUMAB [Suspect]
     Active Substance: VEDOLIZUMAB
     Indication: COLITIS ULCERATIVE
     Dosage: 300 MG, UNK
     Route: 042
     Dates: start: 20161107, end: 20161122
  4. CALCIUM CARBONATE. [Concomitant]
     Active Substance: CALCIUM CARBONATE
     Dosage: UNK
  5. BENEFIBRE [Concomitant]
     Active Substance: INULIN
     Dosage: UNK
  6. CARBAMAZEPINE CR [Concomitant]
     Dosage: 200 MG, UNK
  7. VITALUX AREDS [Concomitant]
     Active Substance: MINERALS\VITAMINS
     Dosage: UNK
  8. 5-ASA [Concomitant]
     Active Substance: MESALAMINE
     Dosage: UNK
  9. ENSURE [Concomitant]
     Active Substance: AMINO ACIDS\DEXTROSE\ELECTROLYTES NOS\SOYBEAN OIL\VITAMINS
     Dosage: UNK
  10. OLANZAPINE. [Concomitant]
     Active Substance: OLANZAPINE
     Dosage: UNK
  11. DIEM-VITAMIN D [Concomitant]
     Dosage: UNK

REACTIONS (2)
  - Blood test abnormal [Unknown]
  - Colitis ulcerative [Unknown]

NARRATIVE: CASE EVENT DATE: 201612
